FAERS Safety Report 8180332 (Version 5)
Quarter: 2013Q1

REPORT INFORMATION
  Report Type: Report from Study
  Country: GR (occurrence: GR)
  Receive Date: 20111013
  Receipt Date: 20130207
  Transmission Date: 20140127
  Serious: Yes (Life-Threatening, Hospitalization)
  Sender: FDA-Public Use
  Company Number: GR-ROCHE-794616

PATIENT
  Age: 62 Year
  Sex: Male
  Weight: 90 kg

DRUGS (3)
  1. VEMURAFENIB [Suspect]
     Indication: MALIGNANT MELANOMA
     Dosage: LAST DOSE PRIOR TO SAE: 31 JULY 2011,PERMANENTLY DISCONTINUED
     Route: 048
     Dates: start: 20110530, end: 20110801
  2. CIPROFLOXACIN [Concomitant]
     Route: 065
     Dates: start: 20110729, end: 20110801
  3. METHYLPREDNISOLONE [Concomitant]
     Route: 065
     Dates: start: 201106

REACTIONS (2)
  - Renal failure acute [Not Recovered/Not Resolved]
  - Infection [Unknown]
